FAERS Safety Report 10734080 (Version 1)
Quarter: 2015Q1

REPORT INFORMATION
  Report Type: Spontaneous
  Country: CA (occurrence: None)
  Receive Date: 20150120
  Receipt Date: 20150120
  Transmission Date: 20150721
  Serious: No
  Sender: FDA-Public Use
  Company Number: 2014FE01995

PATIENT
  Age: 81 Year
  Sex: Male

DRUGS (11)
  1. APO-SIMVASTATIN (SIMVASTATIN) [Concomitant]
  2. ASPIRIN. [Concomitant]
     Active Substance: ASPIRIN
  3. ACTONEL (RISEDRONATE SODIUM) [Concomitant]
  4. VITAMIN B12 (VITAMIN B12 NOS) [Concomitant]
  5. FIRMAGON [Suspect]
     Active Substance: DEGARELIX ACETATE
     Indication: PROSTATE CANCER
     Route: 058
     Dates: start: 20110101
  6. CIPRALEX (ESCITALOPRAM) [Concomitant]
  7. TAMSULOSIN [Concomitant]
     Active Substance: TAMSULOSIN
  8. COD LIVER OIL [Concomitant]
     Active Substance: COD LIVER OIL
  9. GLUCOSAMINE SULFATE [Concomitant]
     Active Substance: GLUCOSAMINE SULFATE
  10. APO-LEVOCARB (LEVODOPA) [Concomitant]
     Active Substance: CARBIDOPA\LEVODOPA
  11. CALCIUM [Concomitant]
     Active Substance: CALCIUM

REACTIONS (9)
  - Metastases to spine [None]
  - Fatigue [None]
  - Pain in extremity [None]
  - Metastases to bone [None]
  - Arthralgia [None]
  - Disease progression [None]
  - Prostatic specific antigen increased [None]
  - Prostate cancer metastatic [None]
  - Mobility decreased [None]

NARRATIVE: CASE EVENT DATE: 20140813
